FAERS Safety Report 16578252 (Version 1)
Quarter: 2019Q3

REPORT INFORMATION
  Report Type: Spontaneous
  Country: US (occurrence: US)
  Receive Date: 20190716
  Receipt Date: 20190716
  Transmission Date: 20191004
  Serious: Yes (Other)
  Sender: FDA-Public Use
  Company Number: US-PFIZER INC-2019302522

PATIENT
  Age: 68 Year
  Sex: Male
  Weight: 71.2 kg

DRUGS (3)
  1. DEXAMETHASONE. [Concomitant]
     Active Substance: DEXAMETHASONE
     Indication: STEROID THERAPY
     Dosage: 8 MG, DAILY (TWO TABLETS DAILY BY MOUTH ON DAYS 2-4 AFTER CHEMO)
     Route: 048
     Dates: start: 20190628
  2. LYRICA [Suspect]
     Active Substance: PREGABALIN
     Indication: BACK PAIN
     Dosage: 150 MG, 3X/DAY
     Route: 048
  3. LYRICA [Suspect]
     Active Substance: PREGABALIN
     Indication: NECK PAIN

REACTIONS (4)
  - Neuropathy peripheral [Unknown]
  - Laryngeal cancer [Unknown]
  - Body height decreased [Unknown]
  - Dementia [Unknown]

NARRATIVE: CASE EVENT DATE: 201903
